FAERS Safety Report 15035011 (Version 1)
Quarter: 2018Q2

REPORT INFORMATION
  Report Type: Spontaneous
  Country: US (occurrence: US)
  Receive Date: 20180529
  Receipt Date: 20180529
  Transmission Date: 20180711
  Serious: Yes (Other)
  Sender: FDA-Public Use
  Company Number: None

PATIENT
  Age: 52 Year
  Sex: Female

DRUGS (1)
  1. IBRANCE [Suspect]
     Active Substance: PALBOCICLIB
     Dates: start: 20180201, end: 20180529

REACTIONS (4)
  - White blood cell count decreased [None]
  - Ear pain [None]
  - Sneezing [None]
  - Oropharyngeal pain [None]

NARRATIVE: CASE EVENT DATE: 20180529
